FAERS Safety Report 6238711-8 (Version None)
Quarter: 2009Q2

REPORT INFORMATION
  Report Type: 
  Country: None (occurrence: None)
  Receive Date: 20090622
  Receipt Date: 20090610
  Transmission Date: 20091009
  Serious: Yes (Hospitalization)
  Sender: FDA-Public Use
  Company Number: JP-PFIZER INC-2009222579

PATIENT
  Age: 20 Year

DRUGS (4)
  1. ZITHROMAC SR [Suspect]
     Indication: PHARYNGITIS
     Dosage: 2 G, 1X/DAY
     Route: 048
     Dates: start: 20090507, end: 20090507
  2. BUFFERIN [Concomitant]
     Route: 048
     Dates: start: 20090507, end: 20090509
  3. CLEMASTINE FUMARATE [Concomitant]
     Route: 048
     Dates: start: 20090507, end: 20090509
  4. ORADOL [Concomitant]
     Dosage: UNK

REACTIONS (1)
  - OCULOMUCOCUTANEOUS SYNDROME [None]
